FAERS Safety Report 17246908 (Version 1)
Quarter: 2020Q1

REPORT INFORMATION
  Report Type: Spontaneous
  Country: US (occurrence: US)
  Receive Date: 20200108
  Receipt Date: 20200108
  Transmission Date: 20200409
  Serious: No
  Sender: FDA-Public Use
  Company Number: US-PFIZER INC-2016182179

PATIENT
  Age: 74 Year
  Sex: Female

DRUGS (27)
  1. COLCRYS [Concomitant]
     Active Substance: COLCHICINE
     Indication: ARTHRALGIA
     Dosage: 0.6 MG, 2X/DAY
     Route: 048
  2. FERROUS SULFATE. [Concomitant]
     Active Substance: FERROUS SULFATE
     Dosage: 325 MG, DAILY
     Route: 048
     Dates: start: 20160419
  3. LOSARTAN POTASSIUM. [Concomitant]
     Active Substance: LOSARTAN POTASSIUM
     Dosage: 100 MG, DAILY
     Route: 048
     Dates: start: 20130601
  4. CHLORTHALIDONE. [Concomitant]
     Active Substance: CHLORTHALIDONE
     Dosage: 12.5 MG, DAILY
     Route: 048
  5. DULOXETINE HCL [Concomitant]
     Active Substance: DULOXETINE HYDROCHLORIDE
     Dosage: 60 MG, DAILY
     Route: 048
     Dates: start: 20160419
  6. ONE TOUCH [Concomitant]
     Active Substance: DEXTROSE
     Dosage: UNK, 2X/DAY
     Dates: start: 19000101
  7. ZOLPIDEM TARTRATE. [Concomitant]
     Active Substance: ZOLPIDEM TARTRATE
     Dosage: 10 MG, 1X/DAY(1 TABLET BY MOUTH EVERY DAY AT BEDTIME)
     Route: 048
     Dates: start: 20090728
  8. ALPRAZOLAM. [Concomitant]
     Active Substance: ALPRAZOLAM
     Dosage: 0.5 MG, UNK (1 TABLET EVERY MORNING AND TAKE 2 TABLETS BY MOUTH EVERY NIGHT AT BEDTIME)
     Route: 048
     Dates: start: 20090728
  9. AZATHIOPRINE. [Concomitant]
     Active Substance: AZATHIOPRINE
     Dosage: 50 MG, 2X/DAY
     Route: 048
     Dates: start: 20140616
  10. CARVEDILOL. [Concomitant]
     Active Substance: CARVEDILOL
     Dosage: 12.5 MG, 2X/DAY
     Route: 048
     Dates: start: 20140708
  11. CLONIDINE HCL [Concomitant]
     Active Substance: CLONIDINE HYDROCHLORIDE
     Indication: SWELLING
     Dosage: 0.3 MG, 2X/DAY
     Route: 048
     Dates: start: 20100726
  12. CYANOCOBALAMIN. [Concomitant]
     Active Substance: CYANOCOBALAMIN
     Dosage: 1000 UG, MONTHLY (1000 MCG/ML, INJECT 1 ML EVERY MONTH)
     Dates: start: 20070605
  13. METHYLPREDNISOLONE. [Concomitant]
     Active Substance: METHYLPREDNISOLONE
     Dosage: 4 MG, UNK (TAKE ONE TABLET BY MOUTH EVERY DAY ALTERNATE WITH 2 TABLETS BY MOUTH EVERY OTHER DAY)
     Route: 048
     Dates: start: 20150914
  14. ASPIRIN. [Concomitant]
     Active Substance: ASPIRIN
     Dosage: 81 MG, UNK
  15. CALCIUM 600 + D [Concomitant]
     Active Substance: CALCIUM\VITAMIN D
     Dosage: 2 DF, DAILY (CALCIUM 600 + D 600-400MG)
     Route: 048
  16. CLONIDINE HCL [Concomitant]
     Active Substance: CLONIDINE HYDROCHLORIDE
     Indication: ARTHRALGIA
     Dosage: 0.2 MG, 2X/DAY
     Route: 048
     Dates: start: 20100726
  17. PROAIR RESPICLICK [Concomitant]
     Active Substance: ALBUTEROL SULFATE
     Dosage: UNK (108 (90BASE) MCG/ACT)
  18. METFORMIN HCL [Concomitant]
     Active Substance: METFORMIN HYDROCHLORIDE
     Dosage: 1000 MG, 2X/DAY (WITH MEALS)
     Route: 048
     Dates: start: 20100726
  19. METFORMIN HCL [Concomitant]
     Active Substance: METFORMIN HYDROCHLORIDE
     Dosage: 500 MG, 2X/DAY
     Route: 048
     Dates: start: 20100726
  20. VITAMIN D [Concomitant]
     Active Substance: VITAMIN D NOS
     Dosage: 500 MG, DAILY
  21. PROMETHAZINE VC [Concomitant]
     Active Substance: PHENYLEPHRINE HYDROCHLORIDE\PROMETHAZINE HYDROCHLORIDE
     Indication: COUGH
     Dosage: AS NEEDED (PHENYLEPHRINE HYDROCHLORIDE:6.25MG,PROMETHAZINE HYDROCHLORIDE: 5MG (EVERY 4-6 H)
     Route: 048
     Dates: start: 20170117
  22. CYCLOBENZAPRINE HCL [Concomitant]
     Active Substance: CYCLOBENZAPRINE HYDROCHLORIDE
     Dosage: 10 MG, 2X/DAY
     Route: 048
  23. LYRICA [Suspect]
     Active Substance: PREGABALIN
     Indication: MYALGIA
     Dosage: 200 MG, 2X/DAY (WITH MEALS), 180 CAPSULES
     Route: 048
     Dates: start: 20081124
  24. COLCRYS [Concomitant]
     Active Substance: COLCHICINE
     Indication: SWELLING
  25. HYDROCODONE BITARTRATE AND ACETAMINOPHEN [Concomitant]
     Active Substance: ACETAMINOPHEN\HYDROCODONE BITARTRATE
     Indication: PAIN
     Dosage: 1 DF, AS NEEDED (EVERY 6 HOURS) (HYDROCODONE BITARTRATE: 10 MG, PARACETAMOL: 325 MG)
     Route: 048
     Dates: start: 20130114
  26. PANTOPRAZOLE SODIUM ANHYDROUS [Concomitant]
     Active Substance: PANTOPRAZOLE SODIUM ANHYDROUS
     Dosage: 40 MG, 1X/DAY (TAKE 1 TABLET BY MOUTH 1 HOUR PRIOR TO A MEAL EVERY DAY
     Route: 048
     Dates: start: 20160118
  27. ATORVASTATIN CALCIUM. [Concomitant]
     Active Substance: ATORVASTATIN CALCIUM
     Dosage: 20 MG, UNK
     Route: 048

REACTIONS (3)
  - Product use in unapproved indication [Unknown]
  - Off label use [Unknown]
  - Malaise [Unknown]
